FAERS Safety Report 6623876-6 (Version None)
Quarter: 2010Q1

REPORT INFORMATION
  Report Type: 
  Country: None (occurrence: None)
  Receive Date: 20100310
  Receipt Date: 20100303
  Transmission Date: 20100710
  Serious: Yes (Life-Threatening, Hospitalization, Other)
  Sender: FDA-Public Use
  Company Number: PHHY2010DK03786

PATIENT
  Sex: Female

DRUGS (3)
  1. VOLTAREN [Suspect]
     Dosage: 75 MG, TWICE DAILY
     Route: 048
     Dates: start: 20070308, end: 20070311
  2. VOLTAREN [Suspect]
     Dosage: 75 MG TWICE DAILY
     Route: 048
     Dates: start: 20070308
  3. IBUMETIN [Suspect]
     Indication: POSTOPERATIVE ANALGESIA
     Dosage: UNK
     Dates: start: 20070318

REACTIONS (21)
  - ABDOMINAL PAIN [None]
  - ABSCESS [None]
  - ANOXIC ENCEPHALOPATHY [None]
  - ANXIETY [None]
  - BLOOD PRESSURE DECREASED [None]
  - CANDIDA SEPSIS [None]
  - CARDIAC ARREST [None]
  - COGNITIVE DISORDER [None]
  - DUODENAL ULCER HAEMORRHAGE [None]
  - GASTROINTESTINAL HAEMORRHAGE [None]
  - HAEMATEMESIS [None]
  - HEART RATE INCREASED [None]
  - KIDNEY INFECTION [None]
  - LUNG DISORDER [None]
  - MEMORY IMPAIRMENT [None]
  - MUSCULAR WEAKNESS [None]
  - NAUSEA [None]
  - PYREXIA [None]
  - RENAL IMPAIRMENT [None]
  - SMALL INTESTINAL HAEMORRHAGE [None]
  - URINARY TRACT INFECTION [None]
